FAERS Safety Report 12540341 (Version 2)
Quarter: 2018Q1

REPORT INFORMATION
  Report Type: Spontaneous
  Country: US (occurrence: US)
  Receive Date: 20160708
  Receipt Date: 20180314
  Transmission Date: 20180508
  Serious: No
  Sender: FDA-Public Use
  Company Number: US-PFIZER INC-2016305836

PATIENT
  Age: 30 Year
  Sex: Female

DRUGS (1)
  1. MORPHINE SULFATE. [Suspect]
     Active Substance: MORPHINE SULFATE
     Dosage: UNK

REACTIONS (3)
  - Drug hypersensitivity [Unknown]
  - Pruritus [Unknown]
  - Urticaria [Unknown]
